FAERS Safety Report 12645200 (Version 3)
Quarter: 2016Q3

REPORT INFORMATION
  Report Type: Spontaneous
  Country: CZ (occurrence: CZ)
  Receive Date: 20160811
  Receipt Date: 20160922
  Transmission Date: 20161109
  Serious: Yes (Death, Hospitalization, Other)
  Sender: FDA-Public Use
  Company Number: CZ-GILEAD-2016-0225112

PATIENT
  Age: 80 Year
  Sex: Male
  Weight: 80 kg

DRUGS (7)
  1. BETALOC ZOK [Concomitant]
     Active Substance: METOPROLOL SUCCINATE
     Indication: ATRIAL FIBRILLATION
     Dosage: 50 MG, UNK
     Dates: start: 20100101, end: 20160501
  2. SUMETROLIM [Concomitant]
     Dosage: 480 MG, UNK
     Route: 048
     Dates: start: 20160121, end: 20160505
  3. KINITO [Concomitant]
     Indication: DYSPEPSIA
     Dosage: 310 MG, UNK
     Route: 048
     Dates: start: 20150101, end: 20160505
  4. HELICID                            /00661201/ [Concomitant]
     Indication: DYSPEPSIA
     Dosage: 20 MG, UNK
     Route: 048
     Dates: start: 20150505, end: 20160505
  5. MILURIT [Concomitant]
     Active Substance: ALLOPURINOL
     Dosage: 300 MG, UNK
     Route: 048
     Dates: start: 20160121, end: 20160619
  6. ZYDELIG [Suspect]
     Active Substance: IDELALISIB
     Indication: B-CELL SMALL LYMPHOCYTIC LYMPHOMA
     Dosage: 300 MG, UNK
     Route: 048
     Dates: start: 20160202, end: 20160505
  7. FRAXIPARINE [Concomitant]
     Active Substance: NADROPARIN CALCIUM
     Indication: ATRIAL FIBRILLATION
     Dosage: 0.8 ML, UNK
     Route: 058
     Dates: start: 20160128, end: 20160519

REACTIONS (2)
  - Clostridium colitis [Fatal]
  - Colitis [Fatal]

NARRATIVE: CASE EVENT DATE: 20160505
